FAERS Safety Report 6964054-0 (Version None)
Quarter: 2010Q3

REPORT INFORMATION
  Report Type: 
  Country: None (occurrence: None)
  Receive Date: 20100902
  Receipt Date: 20100902
  Transmission Date: 20110219
  Serious: No
  Sender: FDA-Public Use
  Company Number: None

PATIENT
  Age: 9 Year
  Sex: Male
  Weight: 37.8 kg

DRUGS (1)
  1. GAMMAGARD LIQUID [Suspect]
     Indication: MYOCARDITIS
     Dosage: 75.6 GRAMS 1TIME IV
     Route: 042
     Dates: start: 20100813, end: 20100813

REACTIONS (7)
  - ABDOMINAL PAIN [None]
  - CHEST PAIN [None]
  - HYPERHIDROSIS [None]
  - INFUSION RELATED REACTION [None]
  - NERVOUSNESS [None]
  - PAIN [None]
  - TACHYCARDIA [None]
